FAERS Safety Report 25007109 (Version 1)
Quarter: 2025Q1

REPORT INFORMATION
  Report Type: Spontaneous
  Country: BE (occurrence: BE)
  Receive Date: 20250225
  Receipt Date: 20250225
  Transmission Date: 20250409
  Serious: Yes (Other)
  Sender: AUROBINDO
  Company Number: BE-FAMHP-DHH-N2025-123898

PATIENT
  Age: 16 Year
  Sex: Female
  Weight: 55 kg

DRUGS (1)
  1. ACETAMINOPHEN [Suspect]
     Active Substance: ACETAMINOPHEN
     Indication: Product used for unknown indication
     Dosage: 6 DOSAGE FORM, ONCE A DAY (6.00 PILLS, ONCE)
     Route: 048

REACTIONS (1)
  - Vomiting [Not Recovered/Not Resolved]
